FAERS Safety Report 6867692-9 (Version None)
Quarter: 2010Q3

REPORT INFORMATION
  Report Type: 
  Country: None (occurrence: None)
  Receive Date: 20100722
  Receipt Date: 20100507
  Transmission Date: 20110219
  Serious: No
  Sender: FDA-Public Use
  Company Number: US-BAUSCH-2010BL002406

PATIENT
  Age: 31 Year
  Sex: Male
  Weight: 99 kg

DRUGS (13)
  1. OPCON-A [Suspect]
     Indication: EYE PRURITUS
     Route: 047
     Dates: start: 20100504, end: 20100504
  2. OPCON-A [Suspect]
     Indication: LACRIMATION INCREASED
     Route: 047
     Dates: start: 20100504, end: 20100504
  3. OPCON-A [Suspect]
     Indication: DRY EYE
     Route: 047
     Dates: start: 20100504, end: 20100504
  4. OPCON-A [Suspect]
     Route: 047
     Dates: start: 20100505, end: 20100505
  5. OPCON-A [Suspect]
     Route: 047
     Dates: start: 20100505, end: 20100505
  6. OPCON-A [Suspect]
     Route: 047
     Dates: start: 20100505, end: 20100505
  7. OPCON-A [Suspect]
     Route: 047
     Dates: start: 20100505, end: 20100505
  8. OPCON-A [Suspect]
     Route: 047
     Dates: start: 20100505, end: 20100505
  9. OPCON-A [Suspect]
     Route: 047
     Dates: start: 20100505, end: 20100505
  10. OPCON-A [Suspect]
     Route: 047
     Dates: start: 20100506, end: 20100506
  11. OPCON-A [Suspect]
     Route: 047
     Dates: start: 20100506, end: 20100506
  12. OPCON-A [Suspect]
     Route: 047
     Dates: start: 20100506, end: 20100506
  13. LORATADINE [Concomitant]
     Indication: SEASONAL ALLERGY
     Route: 048
     Dates: start: 20100505

REACTIONS (3)
  - EYE DISCHARGE [None]
  - EYELID OEDEMA [None]
  - EYELID PAIN [None]
